FAERS Safety Report 7594109-1 (Version None)
Quarter: 2011Q3

REPORT INFORMATION
  Report Type: 
  Country: None (occurrence: None)
  Receive Date: 20110706
  Receipt Date: 20110701
  Transmission Date: 20111222
  Serious: Yes (Death)
  Sender: FDA-Public Use
  Company Number: GR-ABBOTT-11P-066-0836195-00

PATIENT
  Sex: Male

DRUGS (14)
  1. JANUVIA [Concomitant]
     Indication: TYPE 2 DIABETES MELLITUS
     Route: 048
     Dates: start: 20100101, end: 20110509
  2. MAXUDIN [Concomitant]
     Indication: HYPERCHOLESTEROLAEMIA
     Route: 048
     Dates: start: 20100101, end: 20110509
  3. FISIOTENS [Concomitant]
     Indication: HYPERTENSION
     Route: 048
     Dates: start: 20100101, end: 20110509
  4. CARVEDILOL [Concomitant]
     Indication: CORONARY ARTERY DISEASE
     Route: 048
     Dates: start: 20100101, end: 20110509
  5. ZYLAPOUR [Concomitant]
     Indication: HYPERURICAEMIA
     Route: 048
     Dates: start: 20100101, end: 20110509
  6. ZEMPLAR [Suspect]
     Indication: RENAL FAILURE CHRONIC
     Route: 048
     Dates: start: 20100520, end: 20110509
  7. PULMICORT [Concomitant]
     Indication: CHRONIC OBSTRUCTIVE PULMONARY DISEASE
     Dosage: 1 INHALATION THREE TIMES DAILY
     Route: 055
     Dates: start: 20050101, end: 20110509
  8. SINTROM [Concomitant]
     Indication: CORONARY ARTERY DISEASE
     Dosage: 1/2 ONCE DAILY
     Route: 048
     Dates: start: 20100101, end: 20110509
  9. ADALAT [Concomitant]
     Indication: HYPERTENSION
     Route: 048
     Dates: start: 20100101, end: 20110509
  10. MONOSORDIL [Concomitant]
     Indication: CORONARY ARTERY DISEASE
     Route: 048
     Dates: start: 20050101, end: 20110509
  11. INSPRA [Concomitant]
     Indication: CORONARY ARTERY DISEASE
     Dosage: 1/2 ONCE DAILY
     Route: 048
     Dates: start: 20100101, end: 20110509
  12. SPIRIVA [Concomitant]
     Indication: CHRONIC OBSTRUCTIVE PULMONARY DISEASE
     Dosage: 2 INHALATIONS TWO TIMES DAILY
     Route: 055
     Dates: start: 20050101, end: 20110509
  13. ATROVENT [Concomitant]
     Indication: CHRONIC OBSTRUCTIVE PULMONARY DISEASE
     Dosage: 1 INHALATION TWO TIMES DAILY
     Route: 055
     Dates: start: 20050101, end: 20110509
  14. LASIX [Concomitant]
     Indication: HYPERTENSION
     Dosage: 1/2 THREE TIMES DAILY, 500MG DAILY
     Route: 048
     Dates: start: 20100101, end: 20110509

REACTIONS (1)
  - CARDIAC ARREST [None]
